FAERS Safety Report 11290525 (Version 1)
Quarter: 2015Q3

REPORT INFORMATION
  Report Type: Spontaneous
  Country: US (occurrence: US)
  Receive Date: 20150722
  Receipt Date: 20150722
  Transmission Date: 20151125
  Serious: Yes (Death)
  Sender: FDA-Public Use
  Company Number: US-ASTRAZENECA-2015SE68845

PATIENT
  Age: 82 Year
  Sex: Female

DRUGS (1)
  1. DALIRESP [Suspect]
     Active Substance: ROFLUMILAST
     Indication: CHRONIC OBSTRUCTIVE PULMONARY DISEASE
     Route: 048
     Dates: start: 201204

REACTIONS (6)
  - Diarrhoea [Unknown]
  - Drug dose omission [Unknown]
  - Vomiting [Unknown]
  - Headache [Unknown]
  - Respiratory failure [Fatal]
  - Nausea [Unknown]

NARRATIVE: CASE EVENT DATE: 2012
